FAERS Safety Report 4570161-2 (Version None)
Quarter: 2005Q1

REPORT INFORMATION
  Report Type: 
  Country: None (occurrence: None)
  Receive Date: 20050201
  Receipt Date: 20050117
  Transmission Date: 20050727
  Serious: Yes (Death)
  Sender: FDA-Public Use
  Company Number: 2005S1000221

PATIENT
  Age: 66 Year
  Sex: Female

DRUGS (16)
  1. CLOZAPINE [Suspect]
     Indication: SCHIZOAFFECTIVE DISORDER
     Dosage: 100 MG QID, ORAL
     Route: 048
     Dates: start: 20031201, end: 20041201
  2. INSULIN  SLIDING SCALE [Concomitant]
  3. RANITIDINE [Concomitant]
  4. SERTRALINE [Concomitant]
  5. DIVALPROEX SODIUM [Concomitant]
  6. MONOBASIC SODIUM PHOSPHATE [Concomitant]
  7. FUROSEMIDE [Concomitant]
  8. DIGOXIN [Concomitant]
  9. LEVOTHYROXINE [Concomitant]
  10. LISINOPRIL [Concomitant]
  11. MULTI-VITAMIN [Concomitant]
  12. ACETAMINOPHEN [Concomitant]
  13. BISACODYL [Concomitant]
  14. SODIUM BIPHOSPHATE [Concomitant]
  15. SORBITOL [Concomitant]
  16. HUMULIN 70/30 [Concomitant]

REACTIONS (1)
  - CARDIOPULMONARY FAILURE [None]
